FAERS Safety Report 15074827 (Version 1)
Quarter: 2018Q2

REPORT INFORMATION
  Report Type: Spontaneous
  Country: US (occurrence: US)
  Receive Date: 20180627
  Receipt Date: 20180627
  Transmission Date: 20180711
  Serious: No
  Sender: FDA-Public Use
  Company Number: US-SAOL THERAPEUTICS-2017SAO01151

PATIENT
  Age: 43 Year
  Sex: Male

DRUGS (4)
  1. BACLOFEN. [Suspect]
     Active Substance: BACLOFEN
     Indication: MULTIPLE SCLEROSIS
     Dosage: 64.84 ?G, \DAY
     Route: 037
  2. CLONIDINE. [Suspect]
     Active Substance: CLONIDINE
     Dosage: 71.93 ?G, \DAY
     Route: 037
     Dates: end: 20170710
  3. BACLOFEN. [Suspect]
     Active Substance: BACLOFEN
     Dosage: 370.35 ?G, \DAY
     Route: 037
  4. BACLOFEN. [Suspect]
     Active Substance: BACLOFEN
     Indication: MUSCLE SPASTICITY
     Dosage: 79.92 ?G, \DAY
     Route: 037

REACTIONS (5)
  - Anxiety [Recovered/Resolved]
  - Musculoskeletal stiffness [Unknown]
  - Mental status changes [Recovered/Resolved]
  - Muscle spasms [Unknown]
  - Device alarm issue [Unknown]

NARRATIVE: CASE EVENT DATE: 2016
